FAERS Safety Report 9795953 (Version 1)
Quarter: 2014Q1

REPORT INFORMATION
  Report Type: Spontaneous
  Country: SI (occurrence: SI)
  Receive Date: 20140103
  Receipt Date: 20140103
  Transmission Date: 20141002
  Serious: Yes (Other)
  Sender: FDA-Public Use
  Company Number: SI-BAYER-2014-000307

PATIENT
  Age: 31 Year
  Sex: Female

DRUGS (1)
  1. INTERFERON BETA - 1B [Suspect]
     Indication: MULTIPLE SCLEROSIS
     Dosage: UNK
     Route: 058
     Dates: start: 200803

REACTIONS (3)
  - Multiple sclerosis relapse [None]
  - Livedo reticularis [Recovering/Resolving]
  - Raynaud^s phenomenon [Recovering/Resolving]
